FAERS Safety Report 17019981 (Version 1)
Quarter: 2019Q4

REPORT INFORMATION
  Report Type: Report from Study
  Country: US (occurrence: US)
  Receive Date: 20191112
  Receipt Date: 20191112
  Transmission Date: 20200122
  Serious: No
  Sender: FDA-Public Use
  Company Number: NVSC2019US030981

PATIENT
  Sex: Female

DRUGS (1)
  1. COSENTYX [Suspect]
     Active Substance: SECUKINUMAB
     Indication: PSORIATIC ARTHROPATHY
     Dosage: 150 MG, QMO
     Route: 058

REACTIONS (5)
  - Abdominal pain upper [Recovering/Resolving]
  - Fungal infection [Recovering/Resolving]
  - Oral herpes [Recovering/Resolving]
  - Diarrhoea [Recovering/Resolving]
  - Gastroenteritis viral [Recovering/Resolving]
